FAERS Safety Report 13465985 (Version 15)
Quarter: 2017Q4

REPORT INFORMATION
  Report Type: Spontaneous
  Country: US (occurrence: US)
  Receive Date: 20170421
  Receipt Date: 20171115
  Transmission Date: 20180320
  Serious: Yes (Hospitalization, Other)
  Sender: FDA-Public Use
  Company Number: US-PFIZER INC-2017169750

PATIENT
  Age: 71 Year
  Sex: Female
  Weight: 54 kg

DRUGS (15)
  1. CARAFATE [Concomitant]
     Active Substance: SUCRALFATE
     Dosage: UNK
  2. FERROUS SULFATE. [Concomitant]
     Active Substance: FERROUS SULFATE
     Dosage: UNK
  3. KEPPRA [Concomitant]
     Active Substance: LEVETIRACETAM
     Dosage: UNK
  4. TYLENOL PM [Concomitant]
     Active Substance: ACETAMINOPHEN\DIPHENHYDRAMINE
     Dosage: UNK
  5. ACETAMINOPHEN. [Concomitant]
     Active Substance: ACETAMINOPHEN
     Dosage: 650 MG, AS NEEDED (Q4HR, PRN)
     Route: 048
  6. TUMS [Concomitant]
     Active Substance: CALCIUM CARBONATE
     Dosage: UNK
  7. SUTENT [Suspect]
     Active Substance: SUNITINIB MALATE
     Indication: METASTATIC RENAL CELL CARCINOMA
     Dosage: 50 MG, CYCLIC (DAILY FOR 2 WEEKS ON/1 WEEK OFF)
     Dates: start: 20170413, end: 20171005
  8. XARELTO [Suspect]
     Active Substance: RIVAROXABAN
     Dosage: 20 MG, DAILY
  9. LISINOPRIL. [Concomitant]
     Active Substance: LISINOPRIL
     Dosage: UNK
  10. PROTONIX [Concomitant]
     Active Substance: PANTOPRAZOLE SODIUM
     Dosage: UNK
  11. XARELTO [Suspect]
     Active Substance: RIVAROXABAN
     Indication: COAGULOPATHY
     Dosage: 15 MG, 2X/DAY (3 WEEKS)
     Dates: start: 20170413
  12. DOCUSATE SODIUM. [Concomitant]
     Active Substance: DOCUSATE SODIUM
     Dosage: 100 MG, AS NEEDED (2XDAILY, PRN)
     Route: 048
  13. SENOKOT [Concomitant]
     Active Substance: SENNOSIDES
     Dosage: UNK
  14. PANTOPRAZOLE [Concomitant]
     Active Substance: PANTOPRAZOLE
     Indication: GASTROINTESTINAL DISORDER
     Dosage: 40 MG, 1X/DAY
     Dates: start: 201702
  15. ONDANSETRON [Concomitant]
     Active Substance: ONDANSETRON
     Dosage: 4 MG, AS NEEDED (Q6HR)
     Route: 048

REACTIONS (50)
  - Hypertension [Not Recovered/Not Resolved]
  - Feeding disorder [Unknown]
  - Memory impairment [Unknown]
  - Haemoglobin decreased [Recovering/Resolving]
  - Haematochezia [Unknown]
  - Neoplasm progression [Unknown]
  - Drug dose omission [Unknown]
  - Appetite disorder [Recovering/Resolving]
  - Stomatitis [Unknown]
  - Skin discolouration [Unknown]
  - Headache [Not Recovered/Not Resolved]
  - Hyperaesthesia [Unknown]
  - Oesophagitis [Unknown]
  - Fall [Unknown]
  - Pyrexia [Unknown]
  - Sleep disorder [Unknown]
  - Depression [Recovering/Resolving]
  - Abdominal discomfort [Unknown]
  - Energy increased [Unknown]
  - Typical aura without headache [Unknown]
  - Abdominal pain [Unknown]
  - Feeling cold [Unknown]
  - Gastritis [Unknown]
  - Weight decreased [Not Recovered/Not Resolved]
  - Dyspepsia [Unknown]
  - Glossodynia [Unknown]
  - Oral disorder [Unknown]
  - Mutism [Unknown]
  - Chills [Unknown]
  - Gastrointestinal haemorrhage [Unknown]
  - Nausea [Recovered/Resolved]
  - Dysgeusia [Not Recovered/Not Resolved]
  - Flatulence [Unknown]
  - Muscular weakness [Unknown]
  - Dysphonia [Unknown]
  - Visual impairment [Unknown]
  - Cholelithiasis [Unknown]
  - Blood pressure fluctuation [Unknown]
  - Peripheral swelling [Unknown]
  - Hypoacusis [Unknown]
  - Hypotension [Unknown]
  - Haematemesis [Unknown]
  - Constipation [Unknown]
  - Dyspnoea [Unknown]
  - Thermal burn [Unknown]
  - Oropharyngeal pain [Unknown]
  - Fatigue [Recovering/Resolving]
  - Eye swelling [Recovering/Resolving]
  - Malaise [Unknown]
  - Feeling abnormal [Unknown]

NARRATIVE: CASE EVENT DATE: 201704
